FAERS Safety Report 6582797-8 (Version None)
Quarter: 2010Q1

REPORT INFORMATION
  Report Type: 
  Country: None (occurrence: None)
  Receive Date: 20100216
  Receipt Date: 20100205
  Transmission Date: 20100710
  Serious: Yes (Hospitalization)
  Sender: FDA-Public Use
  Company Number: FR-PFIZER INC-2010015464

PATIENT
  Age: 81 Year
  Sex: Female

DRUGS (7)
  1. ALDACTONE [Suspect]
     Indication: OEDEMA PERIPHERAL
     Dosage: 75 MG, 1X/DAY
     Route: 048
     Dates: start: 20070622, end: 20070711
  2. LASILIX [Suspect]
     Indication: OEDEMA PERIPHERAL
     Dosage: 40 MG, 1X/DAY
     Route: 048
     Dates: start: 20070622, end: 20070711
  3. TRIATEC [Suspect]
     Indication: HYPERTENSION
     Dosage: 2.5 MG, 1X/DAY
     Route: 048
     Dates: start: 20070622, end: 20070714
  4. LANTUS [Concomitant]
  5. PREVISCAN [Concomitant]
  6. DIFFU K [Concomitant]
  7. DILTIAZEM [Concomitant]

REACTIONS (1)
  - TOXIC SKIN ERUPTION [None]
